FAERS Safety Report 8903052 (Version 3)
Quarter: 2012Q4

REPORT INFORMATION
  Report Type: 
  Country: JP (occurrence: JP)
  Receive Date: 20121112
  Receipt Date: 20121213
  Transmission Date: 20130627
  Serious: Yes (Hospitalization)
  Sender: FDA-Public Use
  Company Number: JP-JNJFOC-20121101870

PATIENT
  Age: 33 Year
  Sex: Female
  Weight: 46 kg

DRUGS (8)
  1. REMICADE [Suspect]
     Indication: CROHN^S DISEASE
     Dosage: 28th dose
     Route: 042
     Dates: start: 20120820
  2. REMICADE [Suspect]
     Indication: CROHN^S DISEASE
     Dosage: 27th dose
     Route: 042
     Dates: start: 20120620
  3. REMICADE [Suspect]
     Indication: CROHN^S DISEASE
     Dosage: total number of infusions 27
     Route: 042
     Dates: start: 200609
  4. LAC-B [Concomitant]
     Route: 048
     Dates: start: 200609
  5. PENTASA [Concomitant]
     Route: 065
     Dates: start: 200609
  6. ELENTAL [Concomitant]
     Route: 048
     Dates: start: 200609
  7. FERROMIA [Concomitant]
     Route: 048
     Dates: start: 200609
  8. CIPROFLOXACIN HYDROCHLORIDE [Concomitant]
     Route: 065

REACTIONS (3)
  - Small intestinal perforation [Recovered/Resolved]
  - Gastrointestinal haemorrhage [Unknown]
  - Crohn^s disease [Unknown]
